FAERS Safety Report 8798339 (Version 1)
Quarter: 2012Q4

REPORT INFORMATION
  Report Type: 
  Country: NL (occurrence: NL)
  Receive Date: 20120920
  Receipt Date: 20120920
  Transmission Date: 20130627
  Serious: Yes (Other)
  Sender: FDA-Public Use
  Company Number: NL-ROCHE-1130151

PATIENT
  Age: 1 Year
  Sex: Female

DRUGS (1)
  1. MABTHERA [Suspect]
     Indication: DERMATOMYOSITIS
     Route: 065

REACTIONS (1)
  - Thrombocytopenia [Unknown]
